FAERS Safety Report 23548707 (Version 1)
Quarter: 2024Q1

REPORT INFORMATION
  Report Type: Spontaneous
  Country: CN (occurrence: CN)
  Receive Date: 20240221
  Receipt Date: 20240221
  Transmission Date: 20240410
  Serious: Yes (Other)
  Sender: FDA-Public Use
  Company Number: CN-BAYER-2024A027316

PATIENT
  Age: 91 Year
  Sex: Female

DRUGS (2)
  1. ULTRAVIST [Suspect]
     Active Substance: IOPROMIDE
     Indication: Angiocardiogram
     Dosage: 12.47 G, ONCE
     Route: 042
     Dates: start: 20240205, end: 20240205
  2. IODIXANOL [Suspect]
     Active Substance: IODIXANOL
     Indication: Angiocardiogram
     Dosage: 32 G, ONCE
     Route: 042
     Dates: start: 20240205, end: 20240205

REACTIONS (3)
  - Altered state of consciousness [Recovered/Resolved]
  - Disorganised speech [Recovering/Resolving]
  - Dysphoria [Recovering/Resolving]

NARRATIVE: CASE EVENT DATE: 20240206
